FAERS Safety Report 10204022 (Version 3)
Quarter: 2014Q2

REPORT INFORMATION
  Report Type: Spontaneous
  Country: JP (occurrence: JP)
  Receive Date: 20140529
  Receipt Date: 20140630
  Transmission Date: 20141212
  Serious: Yes (Other)
  Sender: FDA-Public Use
  Company Number: JP-PFIZER INC-2014144236

PATIENT
  Age: 58 Year
  Sex: Female

DRUGS (12)
  1. GABAPEN [Suspect]
     Indication: PAIN
     Dosage: 600 MG, DAILY
     Route: 048
     Dates: start: 20140307, end: 20140308
  2. GABAPEN [Suspect]
     Dosage: 1200 MG, DAILY
     Route: 048
     Dates: start: 20140309, end: 20140314
  3. GABAPEN [Suspect]
     Dosage: 600 MG, DAILY
     Route: 048
     Dates: start: 20140516, end: 20140523
  4. EXCEGRAN [Concomitant]
     Dosage: UNK
     Route: 048
  5. LENDORMIN [Concomitant]
     Dosage: UNK
     Route: 048
  6. ALOSENN [Concomitant]
     Dosage: UNK
     Route: 048
  7. PROCYLIN [Concomitant]
     Dosage: UNK
     Route: 048
  8. ACINON [Concomitant]
     Dosage: 150 MG, DAILY
     Route: 048
  9. ZYLORIC [Concomitant]
     Dosage: 100 MG, DAILY
     Route: 048
  10. SPIRONOLACTONE [Concomitant]
     Dosage: 25 MG, DAILY
     Route: 048
  11. LOSARTAN [Concomitant]
     Dosage: 50 MG, DAILY
     Route: 048
  12. AMLODIPINE [Concomitant]
     Dosage: 50 MG, DAILY
     Route: 048

REACTIONS (1)
  - Hypothermia [Unknown]
